FAERS Safety Report 4741698-8 (Version None)
Quarter: 2005Q3

REPORT INFORMATION
  Report Type: 
  Country: None (occurrence: None)
  Receive Date: 20050801
  Receipt Date: 20050624
  Transmission Date: 20060218
  Serious: No
  Sender: FDA-Public Use
  Company Number: 2005PV000115

PATIENT
  Age: 52 Year
  Sex: Female
  Weight: 102.0593 kg

DRUGS (19)
  1. BYETTA [Suspect]
     Indication: DIABETES MELLITUS NON-INSULIN-DEPENDENT
     Dosage: 5 UG; BID; SC
     Route: 058
     Dates: start: 20050621
  2. AVANDIA [Concomitant]
  3. ALTACE [Concomitant]
  4. SIMVASTATIN [Concomitant]
  5. DEMADEX [Concomitant]
  6. FOSAMAX [Concomitant]
  7. NEURONTIN [Concomitant]
  8. SYNTHROID [Concomitant]
  9. M.V.I. [Concomitant]
  10. CHROMIUM [Concomitant]
  11. POTASSIUM CHLORIDE [Concomitant]
  12. CALCIUM GLUCONATE [Concomitant]
  13. . [Concomitant]
  14. FIBER [Concomitant]
  15. ASPIRIN [Concomitant]
  16. METFORMIN [Concomitant]
  17. AMARYL [Concomitant]
  18. PANTOPRAZOLE SODIUM [Concomitant]
  19. PRILOSEC [Concomitant]

REACTIONS (2)
  - HOT FLUSH [None]
  - PYREXIA [None]
